FAERS Safety Report 9999222 (Version 1)
Quarter: 2014Q1

REPORT INFORMATION
  Report Type: Spontaneous
  Country: US (occurrence: None)
  Receive Date: 20140311
  Receipt Date: 20140311
  Transmission Date: 20141002
  Serious: Yes (Other)
  Sender: FDA-Public Use
  Company Number: None

PATIENT
  Age: 34 Year
  Sex: Female
  Weight: 73.48 kg

DRUGS (1)
  1. TAMIFLU 75MG [Suspect]
     Indication: INFLUENZA
     Route: 048
     Dates: start: 20140306, end: 20140309

REACTIONS (5)
  - Irritability [None]
  - Restless legs syndrome [None]
  - Initial insomnia [None]
  - Fatigue [None]
  - Dizziness [None]
